FAERS Safety Report 9025354 (Version 3)
Quarter: 2013Q1

REPORT INFORMATION
  Report Type: Spontaneous
  Country: US (occurrence: US)
  Receive Date: 20121211
  Receipt Date: 20130227
  Transmission Date: 20140127
  Serious: Yes (Other)
  Sender: FDA-Public Use
  Company Number: PHEH2012US017618

PATIENT
  Age: 69 Year
  Sex: Female

DRUGS (11)
  1. TASIGNA [Suspect]
     Indication: CHRONIC MYELOID LEUKAEMIA
     Dosage: 150 MG, BID
     Route: 048
  2. TASIGNA [Suspect]
     Dosage: 400 MG, DAILY
     Route: 048
     Dates: start: 20100208
  3. TASIGNA [Suspect]
     Dosage: 400 MG, BID
     Route: 048
     Dates: start: 20120628
  4. ASPIRIN [Concomitant]
     Dosage: 325 MG, DAILY
  5. SYNTHROID [Concomitant]
     Dosage: 100 UG, DAILY
  6. CALCIUM [Concomitant]
     Dosage: UNK UKN, UNK, DAILY
  7. CRESTOR [Concomitant]
     Dosage: 30 MG, DAILY
  8. ATENOLOL [Concomitant]
     Dosage: 25 MG, DAILY
  9. LISINOPRIL [Concomitant]
     Dosage: 5 MG, DAILY
  10. BUMEX [Concomitant]
     Dosage: UNK UKN, UNK
  11. MULTIVITAMINS [Concomitant]
     Dosage: UNK UKN, UNK, DAILY

REACTIONS (5)
  - Electrocardiogram QT prolonged [Recovered/Resolved]
  - Cardiac disorder [Unknown]
  - Constipation [Recovered/Resolved]
  - Diarrhoea [Recovered/Resolved]
  - Acne [Unknown]
